FAERS Safety Report 12181663 (Version 1)
Quarter: 2016Q1

REPORT INFORMATION
  Report Type: Spontaneous
  Country: CZ (occurrence: CZ)
  Receive Date: 20160315
  Receipt Date: 20160315
  Transmission Date: 20160526
  Serious: Yes (Hospitalization)
  Sender: FDA-Public Use
  Company Number: CZ-IPCA LABORATORIES LIMITED-IPC201603-000315

PATIENT
  Age: 62 Year
  Sex: Female

DRUGS (1)
  1. METOPROLOL TARTRATE. [Suspect]
     Active Substance: METOPROLOL TARTRATE
     Indication: SUICIDE ATTEMPT

REACTIONS (3)
  - Intentional overdose [Unknown]
  - Cardiac arrest [Recovered/Resolved]
  - Haemodynamic instability [Recovered/Resolved]
